FAERS Safety Report 14175965 (Version 2)
Quarter: 2017Q4

REPORT INFORMATION
  Report Type: Spontaneous
  Country: US (occurrence: US)
  Receive Date: 20171109
  Receipt Date: 20171121
  Transmission Date: 20180321
  Serious: Yes (Hospitalization)
  Sender: FDA-Public Use
  Company Number: US-INTERCEPT-PMOCA2017001343

PATIENT

DRUGS (2)
  1. OCALIVA [Suspect]
     Active Substance: OBETICHOLIC ACID
     Indication: BILIARY CIRRHOSIS PRIMARY
     Dosage: 5 MG, QD
     Route: 065
     Dates: start: 201710, end: 20171025
  2. URSO [Concomitant]
     Active Substance: URSODIOL
     Indication: BILIARY CIRRHOSIS PRIMARY
     Dosage: 13 MG/KG, UNK
     Route: 065
     Dates: start: 20140220

REACTIONS (7)
  - Hyperbilirubinaemia [Recovering/Resolving]
  - Hepatic failure [Not Recovered/Not Resolved]
  - Epigastric discomfort [Unknown]
  - Fatigue [Unknown]
  - Hepatic enzyme increased [Recovering/Resolving]
  - Faeces pale [Unknown]
  - Chromaturia [Unknown]

NARRATIVE: CASE EVENT DATE: 20171025
